FAERS Safety Report 21312823 (Version 1)
Quarter: 2022Q3

REPORT INFORMATION
  Report Type: Spontaneous
  Country: US (occurrence: None)
  Receive Date: 20220908
  Receipt Date: 20220908
  Transmission Date: 20221027
  Serious: Yes (Hospitalization, Disabling)
  Sender: FDA-Public Use
  Company Number: None

PATIENT
  Age: 25 Year
  Sex: Female
  Weight: 47.25 kg

DRUGS (1)
  1. QUETIAPINE [Suspect]
     Active Substance: QUETIAPINE
     Dates: start: 20190731, end: 20220802

REACTIONS (6)
  - Diplopia [None]
  - Tardive dyskinesia [None]
  - Speech disorder [None]
  - Dyskinesia [None]
  - Muscular weakness [None]
  - Dysphagia [None]
